FAERS Safety Report 7570086-4 (Version None)
Quarter: 2011Q2

REPORT INFORMATION
  Report Type: 
  Country: None (occurrence: None)
  Receive Date: 20110620
  Receipt Date: 20110314
  Transmission Date: 20111010
  Serious: Yes (Other)
  Sender: FDA-Public Use
  Company Number: US-20110003

PATIENT

DRUGS (3)
  1. SODIUM TETRADECYL SULFATE [Suspect]
     Indication: BALLOON-OCCLUDED RETROGRADE TRANSVENOUS OBLITERATION
     Dosage: 2 ML, 1 IN 1, TOTAL
  2. AIR/CO2 (AIR, CO2) (AIR, CO2) [Suspect]
     Indication: BALLOON-OCCLUDED RETROGRADE TRANSVENOUS OBLITERATION
     Dosage: 3 ML, 1 IN 1, TOTAL
  3. LIPIODOL (ETHIODIZED OIL) (ETHIODIZED OIL) [Suspect]
     Indication: BALLOON-OCCLUDED RETROGRADE TRANSVENOUS OBLITERATION
     Dosage: 1 ML, 1 IN 1, TOTAL

REACTIONS (2)
  - PORTAL VEIN THROMBOSIS [None]
  - OFF LABEL USE [None]
